FAERS Safety Report 15225692 (Version 1)
Quarter: 2018Q4

REPORT INFORMATION
  Report Type: Spontaneous
  Country: US (occurrence: US)
  Receive Date: 20180801
  Receipt Date: 20180801
  Transmission Date: 20190204
  Serious: No
  Sender: FDA-Public Use
  Company Number: US-ELI_LILLY_AND_COMPANY-US201807010924

PATIENT
  Age: 74 Year
  Sex: Female

DRUGS (1)
  1. ABEMACICLIB 50MG [Suspect]
     Active Substance: ABEMACICLIB
     Indication: VITAMIN D DEFICIENCY
     Dosage: 50 MG, UNKNOWN
     Route: 065
     Dates: start: 20180721

REACTIONS (3)
  - Off label use [Unknown]
  - Insomnia [Unknown]
  - Fatigue [Unknown]
